FAERS Safety Report 15587987 (Version 4)
Quarter: 2019Q1

REPORT INFORMATION
  Report Type: Report from Study
  Country: US (occurrence: US)
  Receive Date: 20181105
  Receipt Date: 20190326
  Transmission Date: 20190417
  Serious: Yes (Other)
  Sender: FDA-Public Use
  Company Number: US-MALLINCKRODT-T201802969

PATIENT
  Sex: Female

DRUGS (6)
  1. REPOSITORY CORTICOTROPIN INJECTION [Suspect]
     Active Substance: CORTICOTROPIN
     Indication: RHEUMATOID ARTHRITIS
     Dosage: 80 UNITS/1ML, 2 TIMES PER WEEK, (SUNDAY/THURSDAY)
     Route: 058
     Dates: start: 20180531, end: 2018
  2. REPOSITORY CORTICOTROPIN INJECTION [Suspect]
     Active Substance: CORTICOTROPIN
     Dosage: 40 UNITS
     Route: 065
     Dates: start: 2018
  3. REPOSITORY CORTICOTROPIN INJECTION [Suspect]
     Active Substance: CORTICOTROPIN
     Dosage: 80 UNITS / 1 ML, THREE TIMES A WEEK (TOTAL DOSE IS 80 UNITS)
     Route: 058
     Dates: start: 2018
  4. TIROSINT [Concomitant]
     Active Substance: LEVOTHYROXINE SODIUM
     Indication: PRODUCT USED FOR UNKNOWN INDICATION
     Dosage: UNK
     Route: 065
  5. REPOSITORY CORTICOTROPIN INJECTION [Suspect]
     Active Substance: CORTICOTROPIN
     Dosage: 10 UNITS PER WEEK; THREE TIMES A WEEK TOTAL DOSE IS 80 UNITS
     Route: 058
     Dates: start: 2018, end: 201902
  6. METHOTREXATE. [Concomitant]
     Active Substance: METHOTREXATE
     Indication: PRODUCT USED FOR UNKNOWN INDICATION
     Dosage: UNK
     Route: 065

REACTIONS (17)
  - Muscle spasms [Not Recovered/Not Resolved]
  - Hypersensitivity [Unknown]
  - Oedema [Not Recovered/Not Resolved]
  - Lung disorder [Unknown]
  - Chest discomfort [Unknown]
  - Headache [Unknown]
  - Dysphonia [Unknown]
  - Body temperature abnormal [Not Recovered/Not Resolved]
  - Treatment noncompliance [Not Recovered/Not Resolved]
  - Mass [Recovering/Resolving]
  - Frustration tolerance decreased [Unknown]
  - Wrong technique in product usage process [Unknown]
  - Pruritus generalised [Not Recovered/Not Resolved]
  - C-reactive protein increased [Unknown]
  - Drug intolerance [Unknown]
  - Malaise [Unknown]
  - Pyrexia [Recovering/Resolving]

NARRATIVE: CASE EVENT DATE: 2018
